FAERS Safety Report 6824731-9 (Version None)
Quarter: 2010Q3

REPORT INFORMATION
  Report Type: 
  Country: None (occurrence: None)
  Receive Date: 20100708
  Receipt Date: 20061114
  Transmission Date: 20110219
  Serious: No
  Sender: FDA-Public Use
  Company Number: US-PFIZER INC-2006142788

PATIENT
  Sex: Female
  Weight: 108.86 kg

DRUGS (8)
  1. CHANTIX [Suspect]
     Indication: SMOKING CESSATION THERAPY
     Dates: start: 20061104
  2. GLYBURIDE [Concomitant]
  3. DAYPRO [Concomitant]
  4. PARAFON FORTE [Concomitant]
  5. ALL OTHER THERAPEUTIC PRODUCTS [Concomitant]
  6. LIPITOR [Concomitant]
  7. PREMPRO [Concomitant]
  8. FLEXERIL [Concomitant]

REACTIONS (1)
  - DRUG INEFFECTIVE [None]
